FAERS Safety Report 6727279-5 (Version None)
Quarter: 2010Q2

REPORT INFORMATION
  Report Type: 
  Country: None (occurrence: None)
  Receive Date: 20100517
  Receipt Date: 20100507
  Transmission Date: 20101027
  Serious: Yes (Other)
  Sender: FDA-Public Use
  Company Number: US-JNJFOC-20100502913

PATIENT
  Sex: Female
  Weight: 73.48 kg

DRUGS (2)
  1. TOPAMAX [Suspect]
     Indication: DEPRESSION
     Route: 048
  2. IMIPRAMINE [Suspect]
     Indication: DEPRESSION
     Route: 048

REACTIONS (4)
  - ALANINE AMINOTRANSFERASE INCREASED [None]
  - ASPARTATE AMINOTRANSFERASE INCREASED [None]
  - OSTEOPOROSIS [None]
  - UPPER RESPIRATORY TRACT INFECTION [None]
